FAERS Safety Report 4298851-X (Version None)
Quarter: 2004Q1

REPORT INFORMATION
  Report Type: 
  Country: None (occurrence: None)
  Receive Date: 20040126
  Receipt Date: 20031022
  Transmission Date: 20041129
  Serious: No
  Sender: FDA-Public Use
  Company Number: USA031050621

PATIENT
  Sex: Female

DRUGS (2)
  1. STRATTERA [Suspect]
     Dosage: 65 MG/DAY
     Dates: start: 20030501
  2. LEXAPRO [Concomitant]

REACTIONS (2)
  - FEELING JITTERY [None]
  - HEART RATE INCREASED [None]
